FAERS Safety Report 15343643 (Version 5)
Quarter: 2018Q4

REPORT INFORMATION
  Report Type: Spontaneous
  Country: US (occurrence: US)
  Receive Date: 20180903
  Receipt Date: 20181009
  Transmission Date: 20190204
  Serious: No
  Sender: FDA-Public Use
  Company Number: US-PFIZER INC-2018349587

PATIENT
  Age: 75 Year
  Sex: Male
  Weight: 70.3 kg

DRUGS (4)
  1. CARBAMAZEPINE. [Concomitant]
     Active Substance: CARBAMAZEPINE
     Indication: SEIZURE
     Dosage: 100 MG, 2X/DAY
     Route: 048
     Dates: start: 201808
  2. LYRICA [Suspect]
     Active Substance: PREGABALIN
     Indication: SEIZURE
     Dosage: 600 MG, DAILY (2-3 TIMES/DAY FOR 8 MONTHS)
  3. LYRICA [Suspect]
     Active Substance: PREGABALIN
     Indication: TONGUE SPASM
     Dosage: 300 MG, TWICE A DAY
     Route: 048
     Dates: start: 201802
  4. LYRICA [Suspect]
     Active Substance: PREGABALIN
     Indication: NEURALGIA
     Dosage: 900 MG, DAILY (300 MG, THREE TIMES PER DAY)
     Route: 048

REACTIONS (2)
  - Overdose [Unknown]
  - Drug ineffective [Unknown]
